FAERS Safety Report 19401112 (Version 2)
Quarter: 2021Q3

REPORT INFORMATION
  Report Type: Spontaneous
  Country: US (occurrence: US)
  Receive Date: 20210610
  Receipt Date: 20210723
  Transmission Date: 20211014
  Serious: No
  Sender: FDA-Public Use
  Company Number: US-PFIZER INC-2021476612

PATIENT
  Age: 71 Year
  Sex: Male

DRUGS (1)
  1. GENOTROPIN [Suspect]
     Active Substance: SOMATROPIN
     Dosage: 0.5 MG, DAILY
     Dates: start: 202104

REACTIONS (3)
  - Device mechanical issue [Unknown]
  - Incorrect dose administered [Unknown]
  - Drug dose omission by device [Unknown]
